FAERS Safety Report 24417966 (Version 1)
Quarter: 2024Q4

REPORT INFORMATION
  Report Type: Spontaneous
  Country: CN (occurrence: CN)
  Receive Date: 20241009
  Receipt Date: 20241009
  Transmission Date: 20250115
  Serious: Yes (Life-Threatening)
  Sender: BAUSCH AND LOMB
  Company Number: CN-BAUSCH-BL-2024-014844

PATIENT
  Age: 60 Year
  Sex: Female

DRUGS (9)
  1. DEXAMETHASONE [Suspect]
     Active Substance: DEXAMETHASONE
     Indication: Plasma cell myeloma
     Route: 065
     Dates: start: 2023
  2. DEXAMETHASONE [Suspect]
     Active Substance: DEXAMETHASONE
     Indication: Plasma cell myeloma
     Dosage: VRD CHEMOTHERAPY (BORTEZOMIB, LENALIDOMIDE, AND DEXAMETHASONE), 3 CYCLES
     Route: 065
     Dates: start: 2023, end: 2023
  3. DEXAMETHASONE [Suspect]
     Active Substance: DEXAMETHASONE
     Dosage: D-PAD (DARATUMUMAB-BORTEZOMIB, DOXORUBICIN LIPOSOMES, AND DEXAMETHASONE), 3 CYCLES
     Route: 065
     Dates: start: 2023, end: 2023
  4. BORTEZOMIB [Suspect]
     Active Substance: BORTEZOMIB
     Indication: Plasma cell myeloma
     Dosage: VRD CHEMOTHERAPY (BORTEZOMIB, LENALIDOMIDE, AND DEXAMETHASONE), 3 CYCLES
     Route: 065
     Dates: start: 2023, end: 2023
  5. BORTEZOMIB [Suspect]
     Active Substance: BORTEZOMIB
     Dosage: D-PAD (DARATUMUMAB-BORTEZOMIB, DOXORUBICIN LIPOSOMES, AND DEXAMETHASONE), 3 CYCLES
     Route: 065
     Dates: start: 2023, end: 2023
  6. LENALIDOMIDE [Suspect]
     Active Substance: LENALIDOMIDE
     Indication: Plasma cell myeloma
     Dosage: VRD CHEMOTHERAPY (BORTEZOMIB, LENALIDOMIDE, AND DEXAMETHASONE), 3 CYCLES
     Route: 065
     Dates: start: 2023, end: 2023
  7. DARATUMUMAB [Suspect]
     Active Substance: DARATUMUMAB
     Indication: Plasma cell myeloma
     Dosage: D-PAD (DARATUMUMAB-BORTEZOMIB, DOXORUBICIN LIPOSOMES, AND DEXAMETHASONE), 3 CYCLES
     Route: 065
     Dates: start: 2023, end: 2023
  8. DOXORUBICIN HYDROCHLORIDE [Suspect]
     Active Substance: DOXORUBICIN HYDROCHLORIDE
     Indication: Plasma cell myeloma
     Dosage: D-PAD (DARATUMUMAB-BORTEZOMIB, DOXORUBICIN LIPOSOMES, AND DEXAMETHASONE), 3 CYCLES
     Route: 065
     Dates: start: 2023, end: 2023
  9. DOXORUBICIN HYDROCHLORIDE [Suspect]
     Active Substance: DOXORUBICIN HYDROCHLORIDE
     Dosage: D-PAD (DARATUMUMAB-BORTEZOMIB, DOXORUBICIN LIPOSOMES, AND DEXAMETHASONE), 3 CYCLES
     Route: 065
     Dates: start: 2023

REACTIONS (1)
  - Therapeutic product effect incomplete [Unknown]

NARRATIVE: CASE EVENT DATE: 20230101
